FAERS Safety Report 6971974-X (Version None)
Quarter: 2010Q3

REPORT INFORMATION
  Report Type: 
  Country: None (occurrence: None)
  Receive Date: 20100908
  Receipt Date: 20100824
  Transmission Date: 20110219
  Serious: Yes (Disabling)
  Sender: FDA-Public Use
  Company Number: DK-MYLANLABS-2010S1015377

PATIENT
  Age: 52 Year
  Sex: Female

DRUGS (10)
  1. PACLITAXEL [Suspect]
     Indication: OVARIAN CANCER
     Route: 042
  2. PACLITAXEL [Suspect]
     Indication: MALIGNANT PERITONEAL NEOPLASM
     Route: 042
  3. CARBOPLATIN [Concomitant]
     Indication: OVARIAN CANCER
     Dosage: AUC OF 5
     Route: 042
  4. CARBOPLATIN [Concomitant]
     Indication: MALIGNANT PERITONEAL NEOPLASM
     Dosage: AUC OF 5
     Route: 042
  5. PREDNISONE [Concomitant]
     Indication: HYPERSENSITIVITY
     Route: 065
  6. FENTANYL CITRATE [Concomitant]
     Indication: ANAESTHESIA
     Route: 065
  7. THIOPENTAL SODIUM [Concomitant]
     Indication: ANAESTHESIA
     Route: 065
  8. ROCURONIUM BROMIDE [Concomitant]
     Indication: ANAESTHESIA
     Route: 065
  9. PROPOFOL [Concomitant]
     Indication: ANAESTHESIA
     Route: 065
  10. ALFENTANIL [Concomitant]
     Indication: ANAESTHESIA
     Route: 065

REACTIONS (3)
  - HYPERSENSITIVITY [None]
  - PARAESTHESIA [None]
  - SCLERODERMA [None]
